FAERS Safety Report 8101751-8 (Version None)
Quarter: 2012Q1

REPORT INFORMATION
  Report Type: 
  Country: None (occurrence: None)
  Receive Date: 20120126
  Receipt Date: 20120112
  Transmission Date: 20120608
  Serious: Yes (Hospitalization)
  Sender: FDA-Public Use
  Company Number: 2010MA000808

PATIENT
  Sex: Female
  Weight: 54.4316 kg

DRUGS (38)
  1. COZAAR [Concomitant]
  2. FLUCONAZOLE [Concomitant]
  3. NORVASC [Concomitant]
  4. POTASSIUM CHLORIDE [Concomitant]
  5. PRIMIDONE [Concomitant]
  6. TEGRETOL [Concomitant]
  7. CEPHALEXIN [Concomitant]
  8. METHYLPREDNISOLONE [Concomitant]
  9. MIRTAZAPINE [Concomitant]
  10. CLONIDINE [Concomitant]
  11. VITAMIN D [Concomitant]
  12. AMBIEN [Concomitant]
  13. AMOXICILLIN [Concomitant]
  14. CITALOPRAM HYDROBROMIDE [Concomitant]
  15. NYSTATIN [Concomitant]
  16. PHOS-NAK [Concomitant]
  17. REQUIP [Concomitant]
  18. FAMOTIDINE [Concomitant]
  19. NEURONTIN [Concomitant]
  20. DIAZEPAM [Concomitant]
  21. FEXOFENADINE [Concomitant]
  22. LEVAQUIN [Concomitant]
  23. MIRAPEX [Concomitant]
  24. PLAVIX [Concomitant]
  25. LORTAB [Concomitant]
  26. TETRABENAZINE [Concomitant]
  27. BENZTROPINE MESYLATE [Concomitant]
  28. SULFAMETHOXAZOLE/TRIMETOPRIM [Concomitant]
  29. ATENOLOL AND CHLORTHALIDONE [Concomitant]
  30. LOSARTAN POTASSIUM AND HYDROCHLOROTHIAZIDE [Concomitant]
  31. BOTOX [Concomitant]
  32. METOCLOPRAMIDE [Suspect]
     Indication: GASTROOESOPHAGEAL REFLUX DISEASE
     Dosage: 10 MG;;PO
     Route: 048
     Dates: start: 20040628, end: 20080601
  33. LORAZEPAM [Concomitant]
  34. REMERON [Concomitant]
  35. AMANTADINE HCL [Concomitant]
  36. ZETIA [Concomitant]
  37. KLONOPIN [Concomitant]
  38. RESPERPINE [Concomitant]

REACTIONS (66)
  - TARDIVE DYSKINESIA [None]
  - TRANSIENT ISCHAEMIC ATTACK [None]
  - VERTEBRAL ARTERY OCCLUSION [None]
  - BLOOD POTASSIUM INCREASED [None]
  - MITRAL VALVE INCOMPETENCE [None]
  - OSTEOPENIA [None]
  - INJURY [None]
  - PAIN IN EXTREMITY [None]
  - OROMANDIBULAR DYSTONIA [None]
  - DEPRESSION [None]
  - BLOOD ALKALINE PHOSPHATASE INCREASED [None]
  - AORTIC ARTERIOSCLEROSIS [None]
  - ECONOMIC PROBLEM [None]
  - GASTROOESOPHAGEAL REFLUX DISEASE [None]
  - DYSPNOEA [None]
  - RED BLOOD CELL COUNT DECREASED [None]
  - PROTEIN TOTAL INCREASED [None]
  - CARDIOMYOPATHY [None]
  - CHOREA [None]
  - URINARY TRACT INFECTION [None]
  - ABDOMINAL PAIN [None]
  - SYNCOPE [None]
  - PAIN [None]
  - HYPOAESTHESIA [None]
  - SEDATION [None]
  - GLOBULINS INCREASED [None]
  - HAEMATOCRIT DECREASED [None]
  - OSTEOPOROSIS [None]
  - TRICUSPID VALVE INCOMPETENCE [None]
  - CHOLELITHIASIS [None]
  - CARDIAC DISORDER [None]
  - WEIGHT DECREASED [None]
  - EMOTIONAL DISORDER [None]
  - ATAXIA [None]
  - DIALYSIS [None]
  - INSOMNIA [None]
  - DYSPNOEA EXERTIONAL [None]
  - NEUROPATHY PERIPHERAL [None]
  - ALANINE AMINOTRANSFERASE DECREASED [None]
  - WHITE BLOOD CELL COUNT INCREASED [None]
  - PLATELET COUNT INCREASED [None]
  - HYPERPARATHYROIDISM [None]
  - CEREBRAL ISCHAEMIA [None]
  - BLOOD GLUCOSE INCREASED [None]
  - MEMORY IMPAIRMENT [None]
  - DRUG INTOLERANCE [None]
  - ARTHRALGIA [None]
  - HYPERTENSIVE HEART DISEASE [None]
  - VITAMIN B6 DECREASED [None]
  - RENAL DISORDER [None]
  - CHRONIC OBSTRUCTIVE PULMONARY DISEASE [None]
  - PHARYNGITIS [None]
  - VOMITING [None]
  - NAUSEA [None]
  - RESTLESS LEGS SYNDROME [None]
  - DYSPHAGIA [None]
  - MASTICATION DISORDER [None]
  - HAEMOGLOBIN DECREASED [None]
  - CAROTID ARTERY STENOSIS [None]
  - EXTRAPYRAMIDAL DISORDER [None]
  - FEELING COLD [None]
  - BURNING SENSATION [None]
  - DYSARTHRIA [None]
  - CEREBRAL INFARCTION [None]
  - RED BLOOD CELL SEDIMENTATION RATE INCREASED [None]
  - SPINAL OSTEOARTHRITIS [None]
